FAERS Safety Report 13073442 (Version 1)
Quarter: 2016Q4

REPORT INFORMATION
  Report Type: Spontaneous
  Country: AU (occurrence: AU)
  Receive Date: 20161229
  Receipt Date: 20161229
  Transmission Date: 20170207
  Serious: Yes (Death, Other)
  Sender: FDA-Public Use
  Company Number: AU-REGENERON PHARMACEUTICALS, INC.-2016-25453

PATIENT

DRUGS (6)
  1. EYLEA [Suspect]
     Active Substance: AFLIBERCEPT
     Dosage: ONCE
     Route: 031
     Dates: start: 20160414, end: 20160414
  2. EYLEA [Suspect]
     Active Substance: AFLIBERCEPT
     Indication: AGE-RELATED MACULAR DEGENERATION
     Dosage: ONCE
     Route: 031
     Dates: start: 20160215, end: 20160215
  3. EYLEA [Suspect]
     Active Substance: AFLIBERCEPT
     Dosage: ONCE
     Route: 031
     Dates: start: 20160519, end: 20160519
  4. EYLEA [Suspect]
     Active Substance: AFLIBERCEPT
     Dosage: ONCE
     Route: 031
     Dates: start: 20160315, end: 20160315
  5. EYLEA [Suspect]
     Active Substance: AFLIBERCEPT
     Dosage: ONCE
     Route: 031
     Dates: start: 20160614, end: 20160614
  6. EYLEA [Suspect]
     Active Substance: AFLIBERCEPT
     Dosage: ONCE, TOTAL DOSES TAKEN 6; UNSPECIFIED NUMBER OF DOSES PRIOR TO EVENT
     Route: 031
     Dates: start: 20160714, end: 20160714

REACTIONS (3)
  - Death [Fatal]
  - Product use issue [Unknown]
  - Biopsy lung [Unknown]
